FAERS Safety Report 18032570 (Version 1)
Quarter: 2020Q3

REPORT INFORMATION
  Report Type: Report from Study
  Country: None (occurrence: US)
  Receive Date: 20200716
  Receipt Date: 20200716
  Transmission Date: 20201103
  Serious: Yes (Hospitalization, Other)
  Sender: FDA-Public Use
  Company Number: US-ABBVIE-20K-163-3336594-00

PATIENT
  Age: 61 Year
  Sex: Female

DRUGS (5)
  1. VENCLEXTA [Suspect]
     Active Substance: VENETOCLAX
     Route: 048
     Dates: start: 20200229, end: 20200229
  2. VENCLEXTA [Suspect]
     Active Substance: VENETOCLAX
     Route: 048
     Dates: start: 20200301, end: 20200317
  3. VENCLEXTA [Suspect]
     Active Substance: VENETOCLAX
     Dosage: 70 MILLIGRAM DOSE OF VENCLEXTA (ONE 50 MILLIGRAM AND TWO 10 MILLIGRAM PILLS)
     Route: 048
     Dates: start: 20200318, end: 20200504
  4. VENCLEXTA [Suspect]
     Active Substance: VENETOCLAX
     Dosage: 70 MILLIGRAM DOSE OF VENCLEXTA (ONE 50 MILLIGRAM AND TWO 10 MILLIGRAM PILLS)
     Route: 048
     Dates: start: 20200318, end: 20200504
  5. VENCLEXTA [Suspect]
     Active Substance: VENETOCLAX
     Indication: ACUTE MYELOID LEUKAEMIA
     Route: 048
     Dates: start: 20200228, end: 20200228

REACTIONS (3)
  - Off label use [Unknown]
  - Febrile neutropenia [Recovered/Resolved]
  - Gene mutation [Not Recovered/Not Resolved]

NARRATIVE: CASE EVENT DATE: 202003
